FAERS Safety Report 4674961-X (Version None)
Quarter: 2005Q2

REPORT INFORMATION
  Report Type: 
  Country: None (occurrence: None)
  Receive Date: 20050525
  Receipt Date: 20050517
  Transmission Date: 20051028
  Serious: Yes (Other)
  Sender: FDA-Public Use
  Company Number: 2005076758

PATIENT
  Sex: Male

DRUGS (1)
  1. LOPID [Suspect]
     Indication: ILL-DEFINED DISORDER

REACTIONS (3)
  - ABDOMINAL PAIN UPPER [None]
  - DYSPNOEA [None]
  - PHARYNGEAL OEDEMA [None]
